FAERS Safety Report 15500282 (Version 1)
Quarter: 2018Q4

REPORT INFORMATION
  Report Type: Spontaneous
  Country: US (occurrence: US)
  Receive Date: 20181015
  Receipt Date: 20181015
  Transmission Date: 20190205
  Serious: Yes (Other)
  Sender: FDA-Public Use
  Company Number: US-COLLEGIUM PHARMACEUTICAL, INC.-US-2018DEP000119

PATIENT
  Sex: Female
  Weight: 63.49 kg

DRUGS (1)
  1. NUCYNTA ER [Suspect]
     Active Substance: TAPENTADOL HYDROCHLORIDE
     Indication: ARTHRALGIA
     Dosage: 100 MG, BID
     Route: 048
     Dates: start: 20141029

REACTIONS (2)
  - Seizure [Recovered/Resolved]
  - Product dose omission [Unknown]

NARRATIVE: CASE EVENT DATE: 2016
